FAERS Safety Report 20725952 (Version 2)
Quarter: 2022Q2

REPORT INFORMATION
  Report Type: Spontaneous
  Country: DE (occurrence: DE)
  Receive Date: 20220419
  Receipt Date: 20220502
  Transmission Date: 20220720
  Serious: Yes (Hospitalization, Other)
  Sender: FDA-Public Use
  Company Number: DE-STADA-245948

PATIENT
  Age: 56 Year
  Sex: Female

DRUGS (9)
  1. OXALIPLATIN [Suspect]
     Active Substance: OXALIPLATIN
     Dosage: UNK
     Dates: start: 20200706
  2. LEUCOVORIN CALCIUM [Suspect]
     Active Substance: LEUCOVORIN CALCIUM
     Indication: Product used for unknown indication
     Dosage: UNK
     Dates: start: 20200706
  3. IRINOTECAN HYDROCHLORIDE [Suspect]
     Active Substance: IRINOTECAN HYDROCHLORIDE
     Indication: Product used for unknown indication
     Dosage: UNK
     Dates: start: 20210408
  4. FLUOROURACIL [Suspect]
     Active Substance: FLUOROURACIL
     Indication: Product used for unknown indication
     Dosage: UNK
     Dates: start: 20200706
  5. CAPECITABINE [Suspect]
     Active Substance: CAPECITABINE
     Indication: Product used for unknown indication
     Dosage: UNK
     Dates: start: 20200131, end: 20200430
  6. PEMAZYRE [Suspect]
     Active Substance: PEMIGATINIB
     Indication: Bile duct cancer
     Dosage: TAG 1-14, Q3W
     Route: 048
     Dates: start: 201905, end: 20210922
  7. CISPLATIN [Concomitant]
     Active Substance: CISPLATIN
     Indication: Product used for unknown indication
     Dosage: UNK
     Dates: start: 20190620, end: 20191122
  8. GEMCITABINE [Concomitant]
     Active Substance: GEMCITABINE
     Indication: Product used for unknown indication
     Dosage: UNK
     Dates: start: 20190620, end: 20191122
  9. PACLITAXEL [Concomitant]
     Active Substance: PACLITAXEL
     Indication: Product used for unknown indication
     Dosage: UNK
     Dates: start: 20210429

REACTIONS (13)
  - Leukopenia [Unknown]
  - Skin necrosis [Not Recovered/Not Resolved]
  - Hypercalcaemia of malignancy [Unknown]
  - Staphylococcal infection [Recovering/Resolving]
  - Impaired healing [Recovering/Resolving]
  - Mucosal inflammation [Unknown]
  - Bacterial disease carrier [Not Recovered/Not Resolved]
  - Hyperphosphataemia [Unknown]
  - Skin disorder [Recovering/Resolving]
  - Palmar-plantar erythrodysaesthesia syndrome [Recovered/Resolved]
  - Blood phosphorus decreased [Unknown]
  - Skin ulcer [Recovered/Resolved]
  - Neoplasm progression [Not Recovered/Not Resolved]
